FAERS Safety Report 13531567 (Version 2)
Quarter: 2017Q2

REPORT INFORMATION
  Report Type: Spontaneous
  Country: DE (occurrence: DE)
  Receive Date: 20170510
  Receipt Date: 20170524
  Transmission Date: 20170830
  Serious: Yes (Hospitalization, Other)
  Sender: FDA-Public Use
  Company Number: DE-DRREDDYS-USA/GER/17/0090579

PATIENT
  Age: 70 Year
  Sex: Female

DRUGS (1)
  1. FONDAPARINUX [Suspect]
     Active Substance: FONDAPARINUX
     Indication: PRODUCT USED FOR UNKNOWN INDICATION
     Route: 065

REACTIONS (7)
  - Eye disorder [Unknown]
  - Choroidal effusion [Unknown]
  - Hyphaema [Unknown]
  - Overdose [Unknown]
  - Vitreous haemorrhage [Unknown]
  - Conjunctival haemorrhage [Unknown]
  - Eye haemorrhage [Unknown]
